FAERS Safety Report 10767477 (Version 2)
Quarter: 2015Q1

REPORT INFORMATION
  Report Type: Spontaneous
  Country: GB (occurrence: GB)
  Receive Date: 20150205
  Receipt Date: 20150210
  Transmission Date: 20150721
  Serious: Yes (Death)
  Sender: FDA-Public Use
  Company Number: GB-PFIZER INC-2015046282

PATIENT
  Age: 63 Year
  Sex: Female

DRUGS (2)
  1. MACITENTAN [Concomitant]
     Active Substance: MACITENTAN
     Dosage: 10 MG, 1X/DAY
     Dates: start: 20141229
  2. SILDENAFIL CITRATE. [Suspect]
     Active Substance: SILDENAFIL CITRATE
     Dosage: 25 MG, 3X/DAY

REACTIONS (1)
  - Death [Fatal]

NARRATIVE: CASE EVENT DATE: 20150201
